FAERS Safety Report 8332679-6 (Version None)
Quarter: 2012Q2

REPORT INFORMATION
  Report Type: 
  Country: None (occurrence: None)
  Receive Date: 20120503
  Receipt Date: 20120427
  Transmission Date: 20120825
  Serious: Yes (Other)
  Sender: FDA-Public Use
  Company Number: US-BAYER-2012-041784

PATIENT
  Sex: Female

DRUGS (3)
  1. YASMIN [Suspect]
     Dosage: UNK
     Dates: start: 20090601, end: 20091101
  2. YAZ [Suspect]
     Dosage: UNK
     Dates: start: 20090601, end: 20091101
  3. DROSPIRENONE AND ETHINYL ESTRADIOL [Suspect]
     Dosage: UNK
     Dates: start: 20090601, end: 20091101

REACTIONS (8)
  - DECREASED ACTIVITY [None]
  - PAIN [None]
  - EMOTIONAL DISTRESS [None]
  - CHOLECYSTECTOMY [None]
  - ANXIETY [None]
  - DYSPNOEA [None]
  - INJURY [None]
  - ANHEDONIA [None]
